FAERS Safety Report 25233178 (Version 1)
Quarter: 2025Q2

REPORT INFORMATION
  Report Type: Spontaneous
  Country: CN (occurrence: CN)
  Receive Date: 20250424
  Receipt Date: 20250424
  Transmission Date: 20250716
  Serious: Yes (Other)
  Sender: GALDERMA
  Company Number: CN-GALDERMA-CN2025006037

PATIENT

DRUGS (1)
  1. BENZOYL PEROXIDE [Suspect]
     Active Substance: BENZOYL PEROXIDE
     Indication: Acne
     Route: 061
     Dates: start: 20250319, end: 20250320

REACTIONS (4)
  - Dermatitis contact [Unknown]
  - Macule [Recovering/Resolving]
  - Erythema [Unknown]
  - Pain of skin [Recovering/Resolving]

NARRATIVE: CASE EVENT DATE: 20250319
